FAERS Safety Report 6173674-5 (Version None)
Quarter: 2009Q2

REPORT INFORMATION
  Report Type: 
  Country: None (occurrence: None)
  Receive Date: 20090430
  Receipt Date: 20090427
  Transmission Date: 20091009
  Serious: Yes (Life-Threatening)
  Sender: FDA-Public Use
  Company Number: FR-ASTRAZENECA-2009AC01205

PATIENT
  Age: 33 Year
  Sex: Female

DRUGS (1)
  1. ROPIVACAINE [Suspect]
     Indication: LOCAL ANAESTHESIA
     Route: 008

REACTIONS (1)
  - CARDIAC ARREST [None]
